FAERS Safety Report 4426155-0 (Version None)
Quarter: 2004Q3

REPORT INFORMATION
  Report Type: 
  Country: None (occurrence: None)
  Receive Date: 20040811
  Receipt Date: 20040730
  Transmission Date: 20050211
  Serious: Yes (Other)
  Sender: FDA-Public Use
  Company Number: US-2004-029413

PATIENT
  Age: 40 Year
  Sex: Female

DRUGS (9)
  1. CLIMARA [Suspect]
     Indication: HORMONE REPLACEMENT THERAPY
     Dosage: 0.06 MG/D, CONT, TRANSDERMAL
     Route: 062
     Dates: start: 20040701
  2. SYNTHROID [Concomitant]
  3. TOPAMAX [Concomitant]
  4. NEURONTIN [Concomitant]
  5. INDOCIN [Concomitant]
  6. DOXYCYCLINE [Concomitant]
  7. LEXAPRO [Concomitant]
  8. PREVACID [Concomitant]
  9. DURAGESIC [Concomitant]

REACTIONS (11)
  - ANKYLOSING SPONDYLITIS [None]
  - CHRONIC FATIGUE SYNDROME [None]
  - CONDITION AGGRAVATED [None]
  - CRYING [None]
  - DEPRESSION [None]
  - FASCIITIS [None]
  - HORMONE LEVEL ABNORMAL [None]
  - HOT FLUSH [None]
  - INTERVERTEBRAL DISC PROTRUSION [None]
  - PHARMACEUTICAL PRODUCT COMPLAINT [None]
  - TENDONITIS [None]
